FAERS Safety Report 12920500 (Version 3)
Quarter: 2018Q2

REPORT INFORMATION
  Report Type: Report from Study
  Country: GT (occurrence: GT)
  Receive Date: 20161108
  Receipt Date: 20180427
  Transmission Date: 20180711
  Serious: Yes (Other)
  Sender: FDA-Public Use
  Company Number: PHHY2016GT152152

PATIENT
  Sex: Female
  Weight: 65.31 kg

DRUGS (4)
  1. DOLO-NEUROBION [Concomitant]
     Indication: PRODUCT USED FOR UNKNOWN INDICATION
     Route: 065
  2. GILENYA [Suspect]
     Active Substance: FINGOLIMOD HYDROCHLORIDE
     Indication: MULTIPLE SCLEROSIS
     Dosage: UNK, QHS (AT NIGHT)
     Route: 065
     Dates: start: 201605
  3. ACETAMINOFEN [Concomitant]
     Active Substance: ACETAMINOPHEN
     Indication: PRODUCT USED FOR UNKNOWN INDICATION
     Route: 065
  4. PREGABALINE [Concomitant]
     Active Substance: PREGABALIN
     Indication: PRODUCT USED FOR UNKNOWN INDICATION
     Route: 065

REACTIONS (14)
  - Arrhythmia [Unknown]
  - Palpitations [Not Recovered/Not Resolved]
  - Anxiety [Unknown]
  - Weight increased [Unknown]
  - Pain in extremity [Unknown]
  - Hyperhidrosis [Unknown]
  - Eye pain [Unknown]
  - Headache [Unknown]
  - Dyspnoea [Unknown]
  - Dyspepsia [Not Recovered/Not Resolved]
  - Chest pain [Unknown]
  - Gastric disorder [Not Recovered/Not Resolved]
  - Dizziness [Unknown]
  - Fatigue [Unknown]
